FAERS Safety Report 5657018-0 (Version None)
Quarter: 2008Q1

REPORT INFORMATION
  Report Type: 
  Country: None (occurrence: None)
  Receive Date: 20080310
  Receipt Date: 20080228
  Transmission Date: 20080703
  Serious: Yes (Hospitalization)
  Sender: FDA-Public Use
  Company Number: DE-ASTRAZENECA-2008PK00424

PATIENT
  Age: 50 Year
  Sex: Male

DRUGS (1)
  1. DISOPRIVAN [Suspect]
     Indication: ANAESTHESIA
     Route: 042

REACTIONS (1)
  - ACUTE PULMONARY OEDEMA [None]
